FAERS Safety Report 9471428 (Version 3)
Quarter: 2013Q4

REPORT INFORMATION
  Report Type: Spontaneous
  Country: US (occurrence: US)
  Receive Date: 20130822
  Receipt Date: 20131022
  Transmission Date: 20140711
  Serious: Yes (Other)
  Sender: FDA-Public Use
  Company Number: US-UCBSA-095495

PATIENT
  Sex: Female
  Weight: 56.7 kg

DRUGS (3)
  1. CIMZIA [Suspect]
     Indication: RHEUMATOID ARTHRITIS
     Dates: start: 201307
  2. COUMADIN [Concomitant]
     Dates: end: 2013
  3. PLAVIX [Concomitant]

REACTIONS (1)
  - International normalised ratio increased [Recovered/Resolved]
